FAERS Safety Report 23802394 (Version 1)
Quarter: 2024Q2

REPORT INFORMATION
  Report Type: Spontaneous
  Country: US (occurrence: US)
  Receive Date: 20240501
  Receipt Date: 20240501
  Transmission Date: 20240716
  Serious: Yes (Other)
  Sender: FDA-Public Use
  Company Number: US-DRL-USA-LIT/USA/24/0006211

PATIENT
  Age: 15 Year
  Sex: Male

DRUGS (7)
  1. CYCLOSPORINE [Suspect]
     Active Substance: CYCLOSPORINE
     Indication: Prophylaxis against graft versus host disease
  2. MYCOPHENOLATE MOFETIL [Concomitant]
     Active Substance: MYCOPHENOLATE MOFETIL
     Indication: Prophylaxis against graft versus host disease
  3. ABATACEPT [Concomitant]
     Active Substance: ABATACEPT
     Indication: Prophylaxis against graft versus host disease
  4. DAUNORUBICIN [Concomitant]
     Active Substance: DAUNORUBICIN
     Indication: Acute myeloid leukaemia
     Dosage: ONE CYCLE ?60 MG/M2 ON DAY 1, DAY 3 AND DAY 5
  5. CYTARABINE [Concomitant]
     Active Substance: CYTARABINE
     Indication: Acute myeloid leukaemia
     Dosage: ONE CYCLE ?60 MG/M2 ON DAY 1, DAY 3 AND DAY 5
  6. BUSULFAN [Concomitant]
     Active Substance: BUSULFAN
     Indication: Prophylaxis
     Dosage: 3.2MG/KG/DOSE, FOUR DOSES
  7. CYCLOPHOSPHAMIDE [Concomitant]
     Active Substance: CYCLOPHOSPHAMIDE
     Indication: Prophylaxis
     Dosage: 50MG/KG/DOSE, FOUR DOSES

REACTIONS (1)
  - Drug ineffective for unapproved indication [Unknown]
